FAERS Safety Report 5086504-X (Version None)
Quarter: 2006Q3

REPORT INFORMATION
  Report Type: 
  Country: None (occurrence: None)
  Receive Date: 20060818
  Receipt Date: 20060804
  Transmission Date: 20061208
  Serious: Yes (Hospitalization, Disabling, Other)
  Sender: FDA-Public Use
  Company Number: 2006-DE-04114GD

PATIENT
  Sex: Female

DRUGS (4)
  1. PREDNISONE TAB [Suspect]
     Indication: IMMUNOSUPPRESSANT DRUG THERAPY
     Dosage: 10 MG; 80 MG
  2. PREDNISONE TAB [Suspect]
     Indication: RETINAL VEIN THROMBOSIS
     Dosage: 10 MG; 80 MG
  3. CYCLOSPORINE [Suspect]
     Indication: IMMUNOSUPPRESSANT DRUG THERAPY
     Dosage: 200 MG TWICE DAILY
  4. AZATHIOPRINE [Suspect]
     Indication: IMMUNOSUPPRESSANT DRUG THERAPY
     Dosage: 25 MG

REACTIONS (17)
  - BILIARY TRACT DISORDER [None]
  - BLINDNESS UNILATERAL [None]
  - BLOOD ALKALINE PHOSPHATASE INCREASED [None]
  - BLOOD CHOLESTEROL INCREASED [None]
  - BLOOD CREATININE INCREASED [None]
  - BLOOD TRIGLYCERIDES INCREASED [None]
  - BLOOD URIC ACID INCREASED [None]
  - CHOLANGITIS [None]
  - CHOLECYSTITIS [None]
  - CHOLELITHIASIS [None]
  - HAEMATOCRIT DECREASED [None]
  - HAEMOGLOBIN DECREASED [None]
  - RED BLOOD CELL COUNT DECREASED [None]
  - RED BLOOD CELL SEDIMENTATION RATE INCREASED [None]
  - RETICULOCYTE PERCENTAGE INCREASED [None]
  - RETINAL VEIN THROMBOSIS [None]
  - WHITE BLOOD CELL COUNT INCREASED [None]
